FAERS Safety Report 7693910-3 (Version None)
Quarter: 2011Q3

REPORT INFORMATION
  Report Type: 
  Country: None (occurrence: None)
  Receive Date: 20110819
  Receipt Date: 20110817
  Transmission Date: 20111222
  Serious: Yes (Life-Threatening, Hospitalization, Other)
  Sender: FDA-Public Use
  Company Number: GR-PFIZER INC-2011179788

PATIENT
  Age: 65 Year
  Sex: Male

DRUGS (7)
  1. ITRACONAZOLE [Interacting]
     Indication: FUNGAEMIA
     Dosage: 200 MG, UNK
     Route: 042
  2. ITRACONAZOLE [Interacting]
     Indication: SYSTEMIC CANDIDA
     Dosage: UNK MG, UNK
     Route: 042
  3. ITRACONAZOLE [Interacting]
     Dosage: 200 MG, UNK
     Route: 042
  4. AMIODARONE HCL [Suspect]
     Indication: ATRIAL FIBRILLATION
     Dosage: 300 MG BOLUS
     Route: 042
  5. AMIODARONE HCL [Suspect]
     Indication: HEART RATE ABNORMAL
  6. AMIODARONE HCL [Interacting]
     Indication: ATRIAL FIBRILLATION
     Dosage: 200 MG DAILY
     Route: 048
  7. AMIODARONE HCL [Suspect]
     Indication: HEART RATE INCREASED
     Dosage: UNK
     Route: 042

REACTIONS (3)
  - HYPOTENSION [None]
  - CARDIAC ARREST [None]
  - DRUG INTERACTION [None]
